FAERS Safety Report 19436558 (Version 1)
Quarter: 2021Q2

REPORT INFORMATION
  Report Type: Spontaneous
  Country: AT (occurrence: AT)
  Receive Date: 20210618
  Receipt Date: 20210618
  Transmission Date: 20210717
  Serious: Yes (Hospitalization)
  Sender: FDA-Public Use
  Company Number: AT-ASTRAZENECA-2021A506401

PATIENT
  Age: 60 Year
  Sex: Female

DRUGS (7)
  1. OLEOVIT D3 TROPFEN [Concomitant]
     Route: 065
  2. LYNPARZA [Suspect]
     Active Substance: OLAPARIB
     Indication: OVARIAN CANCER
     Dosage: 100MG+150MG, ACCORDING TO TECHNICAL INFORMATION, 2?0?2
     Route: 048
     Dates: start: 20210210, end: 20210212
  3. ENTEROBENE [Concomitant]
     Route: 065
  4. EUTHYROX [Concomitant]
     Active Substance: LEVOTHYROXINE SODIUM
     Dosage: 75 UG TABLET
     Route: 065
  5. KREON [Concomitant]
     Active Substance: PANCRELIPASE
     Dosage: 25,000 UNITS ? CAPSULES
     Route: 065
  6. AVASTIN [Concomitant]
     Active Substance: BEVACIZUMAB
     Dosage: 25 MG/ML CONCENTRATE FOR THE PREPARATION OF A INFUSION SOLUTION
     Route: 065
  7. PANTOLOC [Concomitant]
     Active Substance: PANTOPRAZOLE SODIUM
     Route: 065

REACTIONS (2)
  - Polyarteritis nodosa [Recovered/Resolved]
  - Rash macular [Recovered/Resolved]

NARRATIVE: CASE EVENT DATE: 20210211
